FAERS Safety Report 5178499-5 (Version None)
Quarter: 2006Q4

REPORT INFORMATION
  Report Type: 
  Country: None (occurrence: None)
  Receive Date: 20061208
  Receipt Date: 20061123
  Transmission Date: 20070319
  Serious: Yes (Hospitalization, Other)
  Sender: FDA-Public Use
  Company Number: 2006RR-04656

PATIENT
  Age: 23 Year
  Sex: Female
  Weight: 67 kg

DRUGS (4)
  1. CLARITHROMYCIN [Suspect]
     Indication: TONSILLITIS
     Dosage: 250 MG, BID,
     Dates: start: 20060824, end: 20060825
  2. LAMOTRIGINE [Suspect]
     Dosage: SEE IMAGE
     Dates: start: 20020101
  3. IBUPROFEN [Concomitant]
  4. MICRONOR [Concomitant]

REACTIONS (2)
  - CONVULSION [None]
  - DRUG INTERACTION [None]
